FAERS Safety Report 4492739-7 (Version None)
Quarter: 2004Q4

REPORT INFORMATION
  Report Type: 
  Country: None (occurrence: None)
  Receive Date: 20041104
  Receipt Date: 20041006
  Transmission Date: 20050328
  Serious: Yes (Hospitalization)
  Sender: FDA-Public Use
  Company Number: ES-AMGEN-UK094648

PATIENT
  Sex: Male
  Weight: 58.5 kg

DRUGS (7)
  1. NEULASTA [Suspect]
     Indication: CHEMOTHERAPY
     Route: 058
     Dates: start: 20040703
  2. ARANESP [Suspect]
     Indication: ANAEMIA OF MALIGNANT DISEASE
     Route: 058
     Dates: start: 20040618, end: 20041008
  3. CYCLOPHOSPHAMIDE [Concomitant]
     Route: 065
     Dates: start: 20040521
  4. VINCRISTINE [Concomitant]
     Route: 065
     Dates: start: 20040521
  5. DOXORUBICIN HCL [Concomitant]
     Route: 065
     Dates: start: 20040521
  6. PREDNISONE [Concomitant]
     Route: 065
     Dates: start: 20040521
  7. RITUXIMAB [Concomitant]
     Route: 065
     Dates: start: 20040521

REACTIONS (1)
  - INTERSTITIAL LUNG DISEASE [None]
